FAERS Safety Report 18599803 (Version 1)
Quarter: 2020Q4

REPORT INFORMATION
  Report Type: Spontaneous
  Country: US (occurrence: US)
  Receive Date: 20201209
  Receipt Date: 20201209
  Transmission Date: 20210114
  Serious: Yes (Hospitalization)
  Sender: FDA-Public Use
  Company Number: None

PATIENT
  Age: 64 Year
  Sex: Female
  Weight: 49.95 kg

DRUGS (3)
  1. KANJINTI [Suspect]
     Active Substance: TRASTUZUMAB-ANNS
     Indication: PANCREATIC CARCINOMA METASTATIC
     Route: 042
     Dates: start: 20201016, end: 20201113
  2. TAXOL [Suspect]
     Active Substance: PACLITAXEL
     Dates: start: 20201016, end: 20201113
  3. FLU SHOT [Suspect]
     Active Substance: INFLUENZA VIRUS VACCINE

REACTIONS (4)
  - Gait disturbance [None]
  - Lung infiltration [None]
  - Cough [None]
  - Dyspnoea [None]

NARRATIVE: CASE EVENT DATE: 20201113
